FAERS Safety Report 25878342 (Version 1)
Quarter: 2025Q4

REPORT INFORMATION
  Report Type: Spontaneous
  Country: US (occurrence: US)
  Receive Date: 20251003
  Receipt Date: 20251003
  Transmission Date: 20260117
  Serious: No
  Sender: BIOMARIN
  Company Number: US-BIOMARINAP-US-2025-169085

PATIENT
  Age: 18 Year
  Sex: Female

DRUGS (1)
  1. VIMIZIM [Suspect]
     Active Substance: ELOSULFASE ALFA
     Indication: Mucopolysaccharidosis IV
     Dosage: 120 MILLIGRAM, QW
     Dates: start: 201509

REACTIONS (6)
  - Pain [Unknown]
  - Feeling abnormal [Unknown]
  - Swelling [Unknown]
  - Device connection issue [Unknown]
  - Device infusion issue [Unknown]
  - Underdose [Unknown]

NARRATIVE: CASE EVENT DATE: 20250927
